FAERS Safety Report 9998978 (Version 1)
Quarter: 2014Q1

REPORT INFORMATION
  Report Type: Spontaneous
  Country: US (occurrence: None)
  Receive Date: 20140310
  Receipt Date: 20140310
  Transmission Date: 20141002
  Serious: Yes (Other)
  Sender: FDA-Public Use
  Company Number: 2014P1001795

PATIENT
  Age: 67 Year
  Sex: Female

DRUGS (2)
  1. VANCOMYCIN [Suspect]
     Route: 042
  2. CEFTRIAXONE [Suspect]
     Route: 042

REACTIONS (5)
  - Renal failure acute [None]
  - Pulmonary embolism [None]
  - Pulmonary infarction [None]
  - Drug reaction with eosinophilia and systemic symptoms [None]
  - Embolic cerebral infarction [None]
